FAERS Safety Report 4330108-0 (Version None)
Quarter: 2004Q1

REPORT INFORMATION
  Report Type: 
  Country: None (occurrence: None)
  Receive Date: 20040329
  Receipt Date: 20040316
  Transmission Date: 20041129
  Serious: Yes (Hospitalization)
  Sender: FDA-Public Use
  Company Number: CA-JNJFOC-20040304654

PATIENT
  Age: 39 Year
  Sex: Female

DRUGS (2)
  1. INFLIXIMAB, RECOMBINANT- BLINDED (INFLIXIMAB, RECOMBINANT) LYOPHILIZED [Suspect]
     Indication: PSORIASIS
     Dosage: INTRAVENOUS
     Route: 042
  2. PLACEBO (PLACEBO) LYOPHILIZED POWDER [Suspect]
     Indication: PSORIASIS
     Dosage: INTRAVENOUS
     Route: 042

REACTIONS (6)
  - ANTINUCLEAR ANTIBODY POSITIVE [None]
  - DERMATITIS CONTACT [None]
  - ERYTHEMA [None]
  - PRURITUS [None]
  - PSORIASIS [None]
  - SYSTEMIC LUPUS ERYTHEMATOSUS [None]
